FAERS Safety Report 11780808 (Version 2)
Quarter: 2016Q4

REPORT INFORMATION
  Report Type: Spontaneous
  Country: CA (occurrence: CA)
  Receive Date: 20151126
  Receipt Date: 20161025
  Transmission Date: 20170206
  Serious: Yes (Other)
  Sender: FDA-Public Use
  Company Number: CA-ROCHE-1667838

PATIENT
  Age: 49 Year
  Sex: Female

DRUGS (4)
  1. HYDROMORPH [Concomitant]
     Active Substance: HYDROMORPHONE
     Dosage: Q8 HRS
     Route: 065
  2. CELEBREX [Suspect]
     Active Substance: CELECOXIB
     Indication: RHEUMATOID ARTHRITIS
     Route: 048
  3. XELJANZ [Suspect]
     Active Substance: TOFACITINIB CITRATE
     Indication: RHEUMATOID ARTHRITIS
     Dosage: THERAPY DURATION: 54 DAYS
     Route: 048
  4. ACTEMRA [Suspect]
     Active Substance: TOCILIZUMAB
     Indication: RHEUMATOID ARTHRITIS
     Route: 065

REACTIONS (12)
  - Pain [Unknown]
  - Activities of daily living impaired [Not Recovered/Not Resolved]
  - Nausea [Not Recovered/Not Resolved]
  - Sinusitis [Unknown]
  - Abdominal pain upper [Not Recovered/Not Resolved]
  - Malaise [Not Recovered/Not Resolved]
  - Night sweats [Not Recovered/Not Resolved]
  - Drug ineffective [Unknown]
  - Gait disturbance [Not Recovered/Not Resolved]
  - Weight decreased [Not Recovered/Not Resolved]
  - Decreased appetite [Not Recovered/Not Resolved]
  - Insomnia [Not Recovered/Not Resolved]
